FAERS Safety Report 8161422-9 (Version None)
Quarter: 2012Q1

REPORT INFORMATION
  Report Type: 
  Country: None (occurrence: None)
  Receive Date: 20120222
  Receipt Date: 20120222
  Transmission Date: 20120608
  Serious: Yes (Other)
  Sender: FDA-Public Use
  Company Number: None

PATIENT
  Sex: Female

DRUGS (1)
  1. COPAXONE [Suspect]
     Dosage: 20MG SQ DAILY
     Route: 058
     Dates: start: 20110602

REACTIONS (4)
  - HYPERHIDROSIS [None]
  - PALPITATIONS [None]
  - NAUSEA [None]
  - DYSPNOEA [None]
